FAERS Safety Report 8141704-7 (Version None)
Quarter: 2012Q1

REPORT INFORMATION
  Report Type: 
  Country: None (occurrence: None)
  Receive Date: 20120216
  Receipt Date: 20120209
  Transmission Date: 20120608
  Serious: Yes (Hospitalization)
  Sender: FDA-Public Use
  Company Number: BR-US-EMD SERONO, INC.-7111743

PATIENT
  Sex: Female

DRUGS (1)
  1. REBIF [Suspect]
     Indication: PRODUCT USED FOR UNKNOWN INDICATION
     Dates: start: 20041122

REACTIONS (6)
  - INJECTION SITE NODULE [None]
  - INJECTION SITE ERYTHEMA [None]
  - GAIT DISTURBANCE [None]
  - SKIN DISCOLOURATION [None]
  - DISEASE PROGRESSION [None]
  - WRONG TECHNIQUE IN DRUG USAGE PROCESS [None]
